FAERS Safety Report 22366975 (Version 1)
Quarter: 2023Q2

REPORT INFORMATION
  Report Type: Spontaneous
  Country: US (occurrence: None)
  Receive Date: 20230525
  Receipt Date: 20230525
  Transmission Date: 20230721
  Serious: Yes (Other)
  Sender: FDA-Public Use
  Company Number: None

PATIENT
  Age: 17 Year
  Sex: Male
  Weight: 90 kg

DRUGS (4)
  1. DROPERIDOL [Suspect]
     Active Substance: DROPERIDOL
  2. TORADOL [Suspect]
     Active Substance: KETOROLAC TROMETHAMINE
  3. ADDERALL [Concomitant]
     Active Substance: AMPHETAMINE ASPARTATE\AMPHETAMINE SULFATE\DEXTROAMPHETAMINE SACCHARATE\DEXTROAMPHETAMINE SULFATE
  4. IBUPROFEN [Concomitant]
     Active Substance: IBUPROFEN

REACTIONS (9)
  - Chest discomfort [None]
  - Feeling abnormal [None]
  - Panic reaction [None]
  - Feeling cold [None]
  - Anxiety [None]
  - Crying [None]
  - Confusional state [None]
  - Derealisation [None]
  - Memory impairment [None]

NARRATIVE: CASE EVENT DATE: 20230523
